FAERS Safety Report 24812490 (Version 1)
Quarter: 2025Q1

REPORT INFORMATION
  Report Type: Spontaneous
  Country: CO (occurrence: CO)
  Receive Date: 20250106
  Receipt Date: 20250106
  Transmission Date: 20250409
  Serious: Yes (Other)
  Sender: MERCK
  Company Number: CO-009507513-1910COL003083

PATIENT

DRUGS (1)
  1. RALTEGRAVIR POTASSIUM [Suspect]
     Active Substance: RALTEGRAVIR POTASSIUM

REACTIONS (1)
  - Pathogen resistance [Not Recovered/Not Resolved]
